FAERS Safety Report 8482029-X (Version None)
Quarter: 2012Q3

REPORT INFORMATION
  Report Type: 
  Country: None (occurrence: None)
  Receive Date: 20120702
  Receipt Date: 20120627
  Transmission Date: 20120928
  Serious: Yes (Other)
  Sender: FDA-Public Use
  Company Number: PHEH2012US012469

PATIENT
  Sex: Female
  Weight: 91 kg

DRUGS (18)
  1. MULTI-VITAMINS [Concomitant]
     Indication: SUPPLEMENTATION THERAPY
     Dates: start: 20110201
  2. VITAMIN D [Concomitant]
     Indication: ANAEMIA
     Dates: start: 19930101
  3. MOTRIN [Concomitant]
     Indication: PAIN IN EXTREMITY
     Dates: start: 20100916
  4. GILENYA [Suspect]
     Indication: MULTIPLE SCLEROSIS
     Dosage: 0.5 MG, UNK
     Route: 048
     Dates: end: 20120417
  5. MECLIZINE [Concomitant]
     Indication: VERTIGO
     Dates: start: 20070501
  6. MAGNESIUM SULFATE [Concomitant]
  7. MULTI-VITAMINS [Concomitant]
     Indication: PREGNANCY
     Route: 048
  8. PROAIR HFA [Concomitant]
     Indication: RESPIRATORY TRACT CONGESTION
     Dates: start: 20090120
  9. LYRICA [Concomitant]
     Indication: PAIN IN EXTREMITY
     Dates: start: 20100517, end: 20100701
  10. FLEXERIL [Concomitant]
     Indication: MUSCLE SPASMS
     Dosage: 10 MG, UNK
     Route: 048
     Dates: start: 20070516, end: 20120105
  11. IRON SUPPLEMENTS [Concomitant]
     Indication: ANAEMIA
     Dates: start: 20100218
  12. VITAMIN E [Concomitant]
     Indication: SUPPLEMENTATION THERAPY
     Dates: start: 20101202
  13. MAGNESIUM HYDROXIDE TAB [Concomitant]
     Indication: NAUSEA
     Dates: start: 20070401
  14. ASCORBIC ACID [Concomitant]
     Indication: ANAEMIA
     Dates: start: 19930101
  15. VITAMIN A [Concomitant]
     Dates: start: 20071224, end: 20100214
  16. IBUPROFEN (ADVIL) [Concomitant]
     Indication: EYE PAIN
     Dates: start: 20080816
  17. EXCEDRIN (MIGRAINE) [Concomitant]
     Indication: HEADACHE
     Dates: start: 20090103
  18. VITAMIN B-12 [Concomitant]
     Indication: ANAEMIA
     Dates: start: 20100218

REACTIONS (3)
  - FEMALE SEX HORMONE LEVEL ABNORMAL [None]
  - MATERNAL EXPOSURE DURING PREGNANCY [None]
  - ABORTION SPONTANEOUS [None]
